FAERS Safety Report 6792933-6 (Version None)
Quarter: 2010Q2

REPORT INFORMATION
  Report Type: 
  Country: None (occurrence: None)
  Receive Date: 20100624
  Receipt Date: 20081126
  Transmission Date: 20101027
  Serious: Yes (Hospitalization, Other)
  Sender: FDA-Public Use
  Company Number: US-PFIZER INC-2008085376

PATIENT
  Sex: Female

DRUGS (2)
  1. SUTENT [Suspect]
     Indication: METASTATIC RENAL CELL CARCINOMA
     Dosage: DAILY, EVERY DAY
     Dates: start: 20080808
  2. SUTENT [Suspect]
     Dosage: DAILY, EVERY DAY
     Dates: start: 20080909, end: 20081005

REACTIONS (8)
  - DISEASE PROGRESSION [None]
  - DYSPHAGIA [None]
  - ENCEPHALOPATHY [None]
  - GENERALISED OEDEMA [None]
  - HEPATIC ENZYME INCREASED [None]
  - METASTATIC RENAL CELL CARCINOMA [None]
  - MUCOSAL INFLAMMATION [None]
  - SOMNOLENCE [None]
